FAERS Safety Report 14870768 (Version 2)
Quarter: 2018Q2

REPORT INFORMATION
  Report Type: Report from Study
  Country: CA (occurrence: CA)
  Receive Date: 20180509
  Receipt Date: 20180518
  Transmission Date: 20180711
  Serious: Yes (Other)
  Sender: FDA-Public Use
  Company Number: CA-IPSEN BIOPHARMACEUTICALS, INC.-2018-06509

PATIENT
  Age: 30 Year
  Sex: Female
  Weight: 58 kg

DRUGS (1)
  1. SOMATULINE AUTOGEL 90MG [Suspect]
     Active Substance: LANREOTIDE ACETATE
     Indication: NEUROENDOCRINE TUMOUR
     Dosage: 90 MG
     Route: 058
     Dates: start: 20180323, end: 20180423

REACTIONS (6)
  - Vomiting [Unknown]
  - Angioedema [Recovering/Resolving]
  - Blood pressure decreased [Unknown]
  - Respiratory distress [Recovered/Resolved]
  - Inappropriate schedule of drug administration [Unknown]
  - Anaphylactic reaction [Recovering/Resolving]

NARRATIVE: CASE EVENT DATE: 20180423
